FAERS Safety Report 9816593 (Version 2)
Quarter: 2014Q1

REPORT INFORMATION
  Report Type: Spontaneous
  Country: AT (occurrence: AT)
  Receive Date: 20140114
  Receipt Date: 20140124
  Transmission Date: 20141002
  Serious: Yes (Other)
  Sender: FDA-Public Use
  Company Number: AT-PFIZER INC-2014007216

PATIENT
  Age: 72 Year
  Sex: Male

DRUGS (10)
  1. HALCION [Suspect]
     Dosage: UNK
  2. LYRICA [Suspect]
     Indication: NEURALGIA
     Dosage: 50 MG, 2X/DAY
     Dates: start: 201312
  3. PREDNISOLON [Suspect]
     Indication: NEURALGIA
     Dosage: 6.25 MG, DAILY
     Dates: start: 201312
  4. SPIRIVA [Concomitant]
  5. SERETIDE [Concomitant]
  6. CARVEDILOL [Concomitant]
  7. LISINOPRIL [Concomitant]
  8. SIMVASTATIN [Concomitant]
  9. MARCOUMAR [Concomitant]
  10. PANTOPRAZOL [Concomitant]

REACTIONS (2)
  - Suicide attempt [Unknown]
  - Suicidal ideation [Unknown]
